FAERS Safety Report 23633462 (Version 1)
Quarter: 2024Q1

REPORT INFORMATION
  Report Type: Report from Study
  Country: PL (occurrence: PL)
  Receive Date: 20240314
  Receipt Date: 20240314
  Transmission Date: 20240410
  Serious: Yes (Other)
  Sender: FDA-Public Use
  Company Number: PL-TAKEDA-2024TUS023402

PATIENT
  Sex: Female
  Weight: 62 kg

DRUGS (2)
  1. LANADELUMAB [Suspect]
     Active Substance: LANADELUMAB
     Indication: Hereditary angioedema
     Dosage: UNK, UNK, MONTHLY
     Route: 058
     Dates: start: 20221107, end: 20240205
  2. FEROPLEX [Concomitant]
     Indication: Anaemia
     Dosage: 40 MILLIGRAM, QD
     Route: 048
     Dates: start: 2023, end: 20240307

REACTIONS (2)
  - Pregnancy [Unknown]
  - No adverse event [None]

NARRATIVE: CASE EVENT DATE: 20240101
